FAERS Safety Report 20913072 (Version 1)
Quarter: 2022Q2

REPORT INFORMATION
  Report Type: Spontaneous
  Country: US (occurrence: None)
  Receive Date: 20220603
  Receipt Date: 20220603
  Transmission Date: 20220721
  Serious: Yes (Other)
  Sender: FDA-Public Use
  Company Number: None

PATIENT
  Age: 45 Year
  Sex: Female
  Weight: 70.2 kg

DRUGS (6)
  1. HUMIRA [Suspect]
     Active Substance: ADALIMUMAB
     Indication: Psoriasis
     Dosage: OTHER FREQUENCY : 80MG DAY 1;?
     Route: 058
     Dates: start: 20220601, end: 20220601
  2. PHENTERMINE [Concomitant]
     Active Substance: PHENTERMINE
  3. CLOBETASOL [Concomitant]
     Active Substance: CLOBETASOL
  4. CLOBETASOL [Concomitant]
     Active Substance: CLOBETASOL
  5. levonorgestrel-ethinyl estradiol triphasic 50-30 (6)/75-40 (5)/125-30( [Concomitant]
  6. TRETINOIN [Concomitant]
     Active Substance: TRETINOIN

REACTIONS (3)
  - Fall [None]
  - Asthenia [None]
  - Hyperhidrosis [None]

NARRATIVE: CASE EVENT DATE: 20220601
